FAERS Safety Report 13184805 (Version 1)
Quarter: 2017Q1

REPORT INFORMATION
  Report Type: Spontaneous
  Country: FR (occurrence: FR)
  Receive Date: 20170203
  Receipt Date: 20170203
  Transmission Date: 20170428
  Serious: Yes (Hospitalization)
  Sender: FDA-Public Use
  Company Number: FR-JNJFOC-20170127735

PATIENT
  Age: 35 Year
  Sex: Male

DRUGS (1)
  1. HALDOL [Suspect]
     Active Substance: HALOPERIDOL
     Indication: SLEEP DISORDER
     Dosage: 20 DROPS
     Route: 065
     Dates: start: 20170116, end: 20170116

REACTIONS (3)
  - Tachycardia [Recovered/Resolved]
  - Drug diversion [Unknown]
  - Hypertonia [Recovered/Resolved]

NARRATIVE: CASE EVENT DATE: 20170116
